FAERS Safety Report 8891530 (Version 2)
Quarter: 2012Q4

REPORT INFORMATION
  Report Type: 
  Country: CA (occurrence: CA)
  Receive Date: 20121107
  Receipt Date: 20121222
  Transmission Date: 20130627
  Serious: Yes (Other)
  Sender: FDA-Public Use
  Company Number: CA-INCYTE CORPORATION-2012IN002208

PATIENT
  Sex: Female

DRUGS (3)
  1. JAKAVI [Suspect]
     Indication: MYELOFIBROSIS
     Dosage: 20 mg, bid
     Route: 048
  2. JAKAVI [Suspect]
     Dosage: 15 mg, bid
     Route: 048
     Dates: start: 20120901
  3. JAKAVI [Suspect]
     Dosage: 10 mg, UNK
     Route: 048

REACTIONS (3)
  - Hypoaesthesia [Recovered/Resolved]
  - Anaemia [Not Recovered/Not Resolved]
  - Neuropathy peripheral [Not Recovered/Not Resolved]
